FAERS Safety Report 11354664 (Version 1)
Quarter: 2015Q3

REPORT INFORMATION
  Report Type: Spontaneous
  Country: US (occurrence: US)
  Receive Date: 20150807
  Receipt Date: 20150807
  Transmission Date: 20151125
  Serious: No
  Sender: FDA-Public Use
  Company Number: US-JNJFOC-20150603008

PATIENT

DRUGS (1)
  1. RISPERDONE [Suspect]
     Active Substance: RISPERIDONE
     Indication: PRODUCT USED FOR UNKNOWN INDICATION
     Route: 048
     Dates: start: 201505, end: 201505

REACTIONS (2)
  - Treatment noncompliance [Unknown]
  - Drug dose omission [Unknown]

NARRATIVE: CASE EVENT DATE: 2015
